FAERS Safety Report 8495241-0 (Version None)
Quarter: 2012Q3

REPORT INFORMATION
  Report Type: 
  Country: None (occurrence: None)
  Receive Date: 20120709
  Receipt Date: 20120625
  Transmission Date: 20120928
  Serious: Yes (Death)
  Sender: FDA-Public Use
  Company Number: US-MYLANLABS-2010S1017206

PATIENT
  Age: 52 Year
  Sex: Female
  Weight: 52.62 kg

DRUGS (16)
  1. OXYBUTYNIN [Concomitant]
     Route: 048
  2. SUCRALFATE [Concomitant]
  3. LYRICA [Concomitant]
     Route: 048
  4. ALPRAZOLAM [Concomitant]
     Route: 048
  5. CRESTOR [Concomitant]
     Route: 048
  6. SEROQUEL [Concomitant]
  7. FENTANYL-100 [Suspect]
     Indication: PAIN
     Dosage: CHANGE Q3D
     Route: 062
     Dates: end: 20070928
  8. PERCOCET [Concomitant]
     Indication: PAIN
     Dosage: BID  7.5MG/325MG
     Route: 048
  9. PROTONIX [Concomitant]
     Route: 048
  10. NYSTATIN [Concomitant]
     Route: 048
  11. COLESTID [Concomitant]
     Route: 048
  12. HYDROCHLOROTHIAZIDE [Concomitant]
     Route: 048
  13. CHANTIX [Concomitant]
     Route: 048
  14. KLOR-CON [Concomitant]
     Route: 048
  15. COMPRO [Concomitant]
     Route: 054
  16. TOPAMAX [Concomitant]

REACTIONS (2)
  - OVERDOSE [None]
  - TOXICITY TO VARIOUS AGENTS [None]
